FAERS Safety Report 5423252-8 (Version None)
Quarter: 2007Q3

REPORT INFORMATION
  Report Type: 
  Country: None (occurrence: None)
  Receive Date: 20070730
  Receipt Date: 20070410
  Transmission Date: 20080115
  Serious: Yes (Other)
  Sender: FDA-Public Use
  Company Number: 200710242BWH

PATIENT
  Age: 64 Year
  Sex: Female
  Weight: 58.9676 kg

DRUGS (3)
  1. AVELOX [Suspect]
     Indication: RESPIRATORY TRACT INFECTION
     Dosage: 400 MG, QD, ORAL
     Route: 048
     Dates: start: 20070119, end: 20070101
  2. MULTI-VITAMIN [Concomitant]
  3. SYNTHROID [Concomitant]

REACTIONS (5)
  - CHEST DISCOMFORT [None]
  - EYELID OEDEMA [None]
  - LIP SWELLING [None]
  - PYREXIA [None]
  - UPPER RESPIRATORY TRACT INFECTION [None]
